FAERS Safety Report 10406908 (Version 2)
Quarter: 2014Q3

REPORT INFORMATION
  Report Type: Spontaneous
  Country: US (occurrence: US)
  Receive Date: 20140825
  Receipt Date: 20140825
  Transmission Date: 20150326
  Serious: Yes (Hospitalization, Other)
  Sender: FDA-Public Use
  Company Number: US-BRISTOL-MYERS SQUIBB COMPANY-21120605

PATIENT
  Age: 69 Year
  Sex: Female
  Weight: 76.19 kg

DRUGS (14)
  1. ASPIRIN. [Concomitant]
     Active Substance: ASPIRIN
  2. DESIPRAMINE [Concomitant]
     Active Substance: DESIPRAMINE
  3. VITAMIN D [Concomitant]
     Active Substance: CHOLECALCIFEROL
  4. METOPROLOL TARTRATE. [Concomitant]
     Active Substance: METOPROLOL TARTRATE
     Dosage: METOPROLOL 25MG?1DF= HALF TABS
  5. SERTRALINE [Concomitant]
     Active Substance: SERTRALINE HYDROCHLORIDE
  6. VITAMIN D3 [Concomitant]
     Active Substance: CHOLECALCIFEROL
  7. LIPITOR [Concomitant]
     Active Substance: ATORVASTATIN CALCIUM
  8. ZANTAC [Concomitant]
     Active Substance: RANITIDINE HYDROCHLORIDE
  9. COLACE [Concomitant]
     Active Substance: DOCUSATE SODIUM
  10. SERTRALINE [Concomitant]
     Active Substance: SERTRALINE HYDROCHLORIDE
  11. CALCIUM CARBONATE. [Concomitant]
     Active Substance: CALCIUM CARBONATE
  12. CHONDROITIN SULFATE + GLUCOSAMINE [Concomitant]
  13. KENALOG-40 [Suspect]
     Active Substance: TRIAMCINOLONE ACETONIDE
     Indication: SACROILIITIS
     Dosage: NO OF INJ:6 OR 7 SI (SACROILIAC) INJECTIONS
     Dates: start: 2005
  14. LAMICTAL [Concomitant]
     Active Substance: LAMOTRIGINE

REACTIONS (11)
  - Pelvic fracture [Unknown]
  - Thinking abnormal [Unknown]
  - Fatigue [Recovered/Resolved]
  - Disorientation [Recovered/Resolved]
  - Blood cortisol decreased [Not Recovered/Not Resolved]
  - Osteopenia [Unknown]
  - Fractured sacrum [Unknown]
  - Drug ineffective [Unknown]
  - Hyperhidrosis [Not Recovered/Not Resolved]
  - Blood sodium decreased [Not Recovered/Not Resolved]
  - Hunger [Not Recovered/Not Resolved]

NARRATIVE: CASE EVENT DATE: 201301
